FAERS Safety Report 5146494-8 (Version None)
Quarter: 2006Q4

REPORT INFORMATION
  Report Type: 
  Country: None (occurrence: None)
  Receive Date: 20061102
  Receipt Date: 20061024
  Transmission Date: 20070319
  Serious: Yes (Hospitalization)
  Sender: FDA-Public Use
  Company Number: 2006129841

PATIENT
  Age: 41 Year
  Sex: Male
  Weight: 68.0396 kg

DRUGS (1)
  1. UNISOM [Suspect]
     Indication: INSOMNIA
     Dosage: 1 TABLET ONCE DAILY AS NEEDED, ORAL
     Route: 048
     Dates: start: 20061021, end: 20061023

REACTIONS (6)
  - CONVULSION [None]
  - DIZZINESS [None]
  - HYPOAESTHESIA [None]
  - HYPOTENSION [None]
  - MUSCLE SPASMS [None]
  - SELF-INDUCED VOMITING [None]
